FAERS Safety Report 5513387-3 (Version None)
Quarter: 2007Q4

REPORT INFORMATION
  Report Type: 
  Country: None (occurrence: None)
  Receive Date: 20071112
  Receipt Date: 20071031
  Transmission Date: 20080405
  Serious: Yes (Hospitalization)
  Sender: FDA-Public Use
  Company Number: US-GENENTECH-250049

PATIENT
  Sex: Female

DRUGS (1)
  1. EFALIZUMAB [Suspect]
     Indication: PSORIASIS

REACTIONS (1)
  - SYNCOPE [None]
